FAERS Safety Report 8957868 (Version 1)
Quarter: 2012Q4

REPORT INFORMATION
  Report Type: 
  Country: US (occurrence: US)
  Receive Date: 20121211
  Receipt Date: 20121211
  Transmission Date: 20130627
  Serious: No
  Sender: FDA-Public Use
  Company Number: US-ABBOTT-12P-163-1004677-00

PATIENT
  Sex: Male
  Weight: 94.43 kg

DRUGS (2)
  1. VICODIN [Suspect]
     Indication: NECK PAIN
     Dosage: 7.5/750
     Dates: start: 2005
  2. VALIUM [Concomitant]
     Indication: MUSCLE SPASMS

REACTIONS (2)
  - Dizziness [Recovered/Resolved]
  - Dizziness [Recovered/Resolved]
